APPROVED DRUG PRODUCT: VANCOMYCIN
Active Ingredient: VANCOMYCIN
Strength: 5GM/100ML (50MG/ML)
Dosage Form/Route: SOLUTION;INTRAVENOUS, ORAL
Application: N213895 | Product #001
Applicant: HIKMA PHARMACEUTICALS USA INC
Approved: Aug 26, 2021 | RLD: Yes | RS: No | Type: DISCN

PATENTS:
Patent 11517609 | Expires: Nov 6, 2035
Patent 10188697 | Expires: Nov 6, 2035
Patent 10039804 | Expires: Nov 6, 2035
Patent 10849956 | Expires: Nov 6, 2035
Patent 11000567 | Expires: Nov 6, 2035